FAERS Safety Report 18558354 (Version 1)
Quarter: 2020Q4

REPORT INFORMATION
  Report Type: Spontaneous
  Country: GB (occurrence: GB)
  Receive Date: 20201130
  Receipt Date: 20201130
  Transmission Date: 20210114
  Serious: Yes (Hospitalization)
  Sender: FDA-Public Use
  Company Number: GB-TEVA-2020-GB-1852645

PATIENT
  Age: 72 Year
  Sex: Female

DRUGS (1)
  1. BISOPROLOL [Suspect]
     Active Substance: BISOPROLOL
     Dosage: 10MG
     Route: 065

REACTIONS (6)
  - Chest pain [Unknown]
  - Syncope [Unknown]
  - Unresponsive to stimuli [Recovered/Resolved]
  - Electrocardiogram QT prolonged [Unknown]
  - Sinus bradycardia [Unknown]
  - Ventricular arrhythmia [Unknown]

NARRATIVE: CASE EVENT DATE: 20200708
